FAERS Safety Report 5203450-9 (Version None)
Quarter: 2007Q1

REPORT INFORMATION
  Report Type: 
  Country: None (occurrence: None)
  Receive Date: 20070110
  Receipt Date: 20070102
  Transmission Date: 20070707
  Serious: Yes (Hospitalization)
  Sender: FDA-Public Use
  Company Number: DE-ROCHE-467223

PATIENT
  Age: 67 Year
  Sex: Female
  Weight: 67 kg

DRUGS (10)
  1. CAPECITABINE [Suspect]
     Indication: BREAST CANCER
     Dosage: GIVEN FROM DAY ONE TO FOURTEEN OF EACH 21-DAY-CYCLE FOR 4 CYCLES.
     Route: 048
     Dates: start: 20060929, end: 20061003
  2. DOCETAXEL [Suspect]
     Indication: BREAST CANCER
     Dosage: GIVEN ON DAY ONE OF EACH 21-DAY-CYCLE FOR 4 CYCLES. FORM REPORTED AS INFUSION
     Route: 042
     Dates: start: 20060929
  3. EPIRUBICIN [Suspect]
     Indication: BREAST CANCER
     Dosage: GIVEN ON DAY ONE OF EACH 21-DAY-CYCLE FOR 4 CYCLES.
     Route: 065
  4. CYCLOPHOSPHAMIDE [Suspect]
     Indication: BREAST CANCER
     Dosage: GIVEN ON DAY ONE OF EACH 21-DAY-CYCLE FOR 4 CYCLES.
     Route: 065
  5. MORPHINE [Concomitant]
     Dosage: REPORTED AS MORPHIUM.
     Dates: start: 20061003
  6. NOVALGIN [Concomitant]
     Dates: start: 20061003, end: 20061004
  7. PANTOZOL [Concomitant]
     Dosage: WAS TEMPORARILY INTERRUPTED ON 11 OCTOBER 2006 AND RESTARTED ON 20 OCTOBER 2006.
     Dates: start: 20061006
  8. PASPERTIN [Concomitant]
     Dates: start: 20061005, end: 20061011
  9. UNSPECIFIED DRUG [Concomitant]
     Dosage: DRUG NAME REPORTED AS OBP-INFUSION.
     Dates: start: 20061003, end: 20061010
  10. RINGER'S INJECTION [Concomitant]
     Dosage: REPORTED AS RINGER-INFUSION.
     Dates: start: 20061003, end: 20061010

REACTIONS (2)
  - ASTHENIA [None]
  - MUCOSAL INFLAMMATION [None]
